FAERS Safety Report 10162174 (Version 1)
Quarter: 2014Q2

REPORT INFORMATION
  Report Type: Spontaneous
  Country: US (occurrence: None)
  Receive Date: 20140507
  Receipt Date: 20140507
  Transmission Date: 20141212
  Serious: Yes (Hospitalization)
  Sender: FDA-Public Use
  Company Number: 20140189

PATIENT
  Age: 66 Year
  Sex: Male

DRUGS (1)
  1. VENOFER [Suspect]
     Indication: NEPHROPATHY
     Dosage: 100 MG OVER 5 MINUTES
     Route: 040
     Dates: start: 20140318, end: 20140324

REACTIONS (11)
  - Hypotension [None]
  - Extravasation [None]
  - Pain [None]
  - Pain in extremity [None]
  - Pneumonia [None]
  - Inappropriate schedule of drug administration [None]
  - Dyspnoea [None]
  - Acute respiratory distress syndrome [None]
  - Hypoxia [None]
  - Parotitis [None]
  - Leukocytosis [None]
